FAERS Safety Report 4523651-2 (Version None)
Quarter: 2004Q4

REPORT INFORMATION
  Report Type: 
  Country: None (occurrence: None)
  Receive Date: 20041208
  Receipt Date: 20041129
  Transmission Date: 20050328
  Serious: Yes (Death, Life-Threatening, Hospitalization)
  Sender: FDA-Public Use
  Company Number: 2004UW24718

PATIENT
  Age: 86 Year
  Sex: Male
  Weight: 64 kg

DRUGS (19)
  1. CANDESARTAN [Suspect]
     Indication: CORONARY ARTERY DISEASE
     Dosage: 16 MG QD PO
     Route: 048
     Dates: start: 20040604, end: 20040628
  2. CANDESARTAN [Suspect]
     Indication: DIABETES MELLITUS
     Dosage: 16 MG QD PO
     Route: 048
     Dates: start: 20040604, end: 20040628
  3. CANDESARTAN [Suspect]
     Indication: HYPERTENSION
     Dosage: 16 MG QD PO
     Route: 048
     Dates: start: 20040604, end: 20040628
  4. ASPRIN ^BAYER^ [Concomitant]
  5. AMLODIPINE [Concomitant]
  6. ATORVASTATIN [Concomitant]
  7. CARVEDILOL [Concomitant]
  8. PLAVIX [Concomitant]
  9. COLACE [Concomitant]
  10. DONEPEZIL HCL [Concomitant]
  11. FERROUS SULFATE TAB [Concomitant]
  12. FOLATE [Concomitant]
  13. LASIX [Concomitant]
  14. LANTUS [Concomitant]
  15. ISORDIL [Concomitant]
  16. MULTI-VITAMINS [Concomitant]
  17. PROTONIX [Concomitant]
  18. LATANOPROST [Concomitant]
  19. TIMOLOL MALEATE [Concomitant]

REACTIONS (2)
  - ANGIONEUROTIC OEDEMA [None]
  - PNEUMONIA ASPIRATION [None]
